FAERS Safety Report 22534985 (Version 1)
Quarter: 2023Q2

REPORT INFORMATION
  Report Type: Spontaneous
  Country: US (occurrence: None)
  Receive Date: 20230607
  Receipt Date: 20230607
  Transmission Date: 20230721
  Serious: Yes (Hospitalization)
  Sender: FDA-Public Use
  Company Number: None

PATIENT
  Age: 27 Year
  Sex: Female
  Weight: 112.5 kg

DRUGS (10)
  1. TRULICITY [Suspect]
     Active Substance: DULAGLUTIDE
     Indication: Type 2 diabetes mellitus
     Dates: start: 20221101, end: 20230531
  2. MOUNJARO [Concomitant]
     Active Substance: TIRZEPATIDE
  3. LEVOTHYROXINE [Concomitant]
     Active Substance: LEVOTHYROXINE
  4. FENOFIBRATE [Concomitant]
     Active Substance: FENOFIBRATE
  5. ELIQUIS [Concomitant]
     Active Substance: APIXABAN
  6. SUMATRIPTAN [Concomitant]
     Active Substance: SUMATRIPTAN
  7. NAPROXEN [Concomitant]
     Active Substance: NAPROXEN
  8. LOSARTAN [Concomitant]
     Active Substance: LOSARTAN
  9. inositol powder [Concomitant]
  10. berberine gummies [Concomitant]

REACTIONS (4)
  - Abdominal pain [None]
  - Gallbladder disorder [None]
  - Injection site erythema [None]
  - Injection site pruritus [None]

NARRATIVE: CASE EVENT DATE: 20230227
